FAERS Safety Report 12294683 (Version 1)
Quarter: 2016Q2

REPORT INFORMATION
  Report Type: Spontaneous
  Country: US (occurrence: None)
  Receive Date: 20160421
  Receipt Date: 20160421
  Transmission Date: 20160815
  Serious: No
  Sender: FDA-Public Use
  Company Number: None

PATIENT
  Age: 19 Year
  Sex: Female

DRUGS (2)
  1. INVANZ [Suspect]
     Active Substance: ERTAPENEM SODIUM
     Route: 042
  2. VALPROATE [Suspect]
     Active Substance: VALPROIC ACID
     Route: 042

REACTIONS (3)
  - Anticonvulsant drug level decreased [None]
  - Seizure [None]
  - Drug interaction [None]
